FAERS Safety Report 5108859-X (Version None)
Quarter: 2006Q3

REPORT INFORMATION
  Report Type: 
  Country: None (occurrence: None)
  Receive Date: 20060915
  Receipt Date: 20060915
  Transmission Date: 20061208
  Serious: Yes (Life-Threatening, Hospitalization, Disabling)
  Sender: FDA-Public Use
  Company Number: None

PATIENT
  Age: 73 Year
  Sex: Female
  Weight: 80.7403 kg

DRUGS (1)
  1. PSEUDOEPHEDRINE HCL [Suspect]
     Indication: COUGH
     Dates: start: 20060317, end: 20060320

REACTIONS (2)
  - DIZZINESS [None]
  - PALPITATIONS [None]
